FAERS Safety Report 7520938-6 (Version None)
Quarter: 2011Q2

REPORT INFORMATION
  Report Type: 
  Country: None (occurrence: None)
  Receive Date: 20110603
  Receipt Date: 20101130
  Transmission Date: 20111010
  Serious: Yes (Hospitalization, Other)
  Sender: FDA-Public Use
  Company Number: US-BAYER-201038274NA

PATIENT
  Sex: Female
  Weight: 61.224 kg

DRUGS (7)
  1. YASMIN [Suspect]
     Indication: MENSTRUATION IRREGULAR
     Dosage: 1 DF, ONCE
     Dates: start: 20000101, end: 20060101
  2. DROSPIRENONE AND ETHINYL ESTRADIOL [Suspect]
     Indication: ACNE
  3. YAZ [Suspect]
     Indication: ACNE
     Dosage: 1 DF, ONCE
     Dates: start: 20020101, end: 20060101
  4. YASMIN [Suspect]
     Indication: ACNE
     Dosage: 1 DF, ONCE
     Dates: start: 20080101, end: 20090101
  5. MOTRIN [Concomitant]
  6. DROSPIRENONE AND ETHINYL ESTRADIOL [Suspect]
     Indication: MENSTRUATION IRREGULAR
  7. YAZ [Suspect]
     Indication: MENSTRUATION IRREGULAR
     Dosage: 1 DF, ONCE
     Dates: start: 20080101, end: 20090101

REACTIONS (8)
  - BLOOD CHOLESTEROL INCREASED [None]
  - ABDOMINAL PAIN UPPER [None]
  - PROCEDURAL PAIN [None]
  - CHOLECYSTITIS CHRONIC [None]
  - CHOLECYSTITIS ACUTE [None]
  - BILE DUCT STONE [None]
  - JAUNDICE [None]
  - CHOLELITHIASIS [None]
